FAERS Safety Report 6504556-4 (Version None)
Quarter: 2009Q4

REPORT INFORMATION
  Report Type: 
  Country: None (occurrence: None)
  Receive Date: 20091215
  Receipt Date: 20091204
  Transmission Date: 20100525
  Serious: Yes (Hospitalization, Other)
  Sender: FDA-Public Use
  Company Number: 2009AC000269

PATIENT
  Age: 53 Year
  Sex: Female

DRUGS (50)
  1. DIGOXIN [Suspect]
     Indication: CARDIAC FAILURE CONGESTIVE
     Dosage: 0.125 MG;QD;PO
     Route: 048
     Dates: start: 20040501
  2. LEVAQUIN [Concomitant]
  3. METOPROLOL TARTRATE [Concomitant]
  4. LASIX [Concomitant]
  5. SIMVASTATIN [Concomitant]
  6. MONOPRIL [Concomitant]
  7. FERROUS SULFATE TAB [Concomitant]
  8. SYNTHROID [Concomitant]
  9. HYZAAR [Concomitant]
  10. CLONIDINE [Concomitant]
  11. GEMFIBROZIL [Concomitant]
  12. AVANDIA [Concomitant]
  13. DYNACIRC [Concomitant]
  14. LANTUS [Concomitant]
  15. LANTUS [Concomitant]
  16. LISINOPRIL [Concomitant]
  17. GEMFIBROZIL [Concomitant]
  18. XENICAL [Concomitant]
  19. GLUCOPHAGE [Concomitant]
  20. GLYBURIDE [Concomitant]
  21. SYNTHROID [Concomitant]
  22. HYDROCHLOROTHIAZIDE [Concomitant]
  23. ASPIRIN [Concomitant]
  24. METOPROLOL TARTRATE [Concomitant]
  25. FOSINOPRIL SODIUM [Concomitant]
  26. CLONIDINE [Concomitant]
  27. DYNACIRC [Concomitant]
  28. FERROUS SULFATE TAB [Concomitant]
  29. LEVOTHYROXINE SODIUM [Concomitant]
  30. DRISDOL [Concomitant]
  31. AVANDIA [Concomitant]
  32. CRESTOR [Concomitant]
  33. PROCRIT [Concomitant]
  34. INSULIN [Concomitant]
  35. LANTUS [Concomitant]
  36. TRILIPIX [Concomitant]
  37. DOIVAN [Concomitant]
  38. AMLODIPINE [Concomitant]
  39. ROCEPHIN [Concomitant]
  40. ZITHROMAX [Concomitant]
  41. * RELION [Concomitant]
  42. AMLODIPINE [Concomitant]
  43. CALCITRIOL [Concomitant]
  44. AMLODIPINE [Concomitant]
  45. CALCITRIOL [Concomitant]
  46. CALCIUM ACETATE [Concomitant]
  47. ASCENSIA [Concomitant]
  48. DIOVAN [Concomitant]
  49. ATACAND [Concomitant]
  50. CEFDINIR [Concomitant]

REACTIONS (27)
  - ABDOMINAL PAIN [None]
  - ABDOMINAL PAIN UPPER [None]
  - ACIDOSIS [None]
  - ANAEMIA [None]
  - BACK INJURY [None]
  - BLOOD PRESSURE INCREASED [None]
  - BRONCHITIS [None]
  - CARDIAC FAILURE CONGESTIVE [None]
  - CATARACT CORTICAL [None]
  - COMPUTERISED TOMOGRAM ABNORMAL [None]
  - CONDITION AGGRAVATED [None]
  - DIARRHOEA [None]
  - ECONOMIC PROBLEM [None]
  - HEADACHE [None]
  - HYPERKALAEMIA [None]
  - HYPERLIPIDAEMIA [None]
  - IMPAIRED WORK ABILITY [None]
  - IRON DEFICIENCY ANAEMIA [None]
  - LOBAR PNEUMONIA [None]
  - MULTIPLE INJURIES [None]
  - NEPHRITIS [None]
  - OEDEMA PERIPHERAL [None]
  - POLLAKIURIA [None]
  - RENAL FAILURE ACUTE [None]
  - RENAL FAILURE CHRONIC [None]
  - STRESS URINARY INCONTINENCE [None]
  - VISUAL ACUITY REDUCED [None]
